FAERS Safety Report 7245858-6 (Version None)
Quarter: 2011Q1

REPORT INFORMATION
  Report Type: 
  Country: None (occurrence: None)
  Receive Date: 20110126
  Receipt Date: 20110120
  Transmission Date: 20110831
  Serious: Yes (Hospitalization)
  Sender: FDA-Public Use
  Company Number: IT-MERCK-1101ITA00029

PATIENT
  Age: 74 Year
  Sex: Male

DRUGS (26)
  1. PIPERACILLIN SODIUM AND TAZOBACTAM SODIUM [Suspect]
     Indication: SEPSIS
     Route: 041
     Dates: start: 20101215, end: 20101221
  2. MEROPENEM [Suspect]
     Route: 041
     Dates: start: 20110104, end: 20110111
  3. OMEPRAZOLE [Concomitant]
     Route: 065
  4. NOREPINEPHRINE [Concomitant]
     Route: 065
  5. AMIKACIN [Suspect]
     Route: 041
     Dates: start: 20101220, end: 20101226
  6. INSULIN HUMAN [Concomitant]
     Route: 065
  7. FUROSEMIDE SODIUM [Concomitant]
     Route: 065
  8. PIPERACILLIN SODIUM AND TAZOBACTAM SODIUM [Suspect]
     Route: 041
     Dates: start: 20101226, end: 20101230
  9. TEICOPLANIN [Suspect]
     Route: 041
     Dates: start: 20101225, end: 20110104
  10. MORPHINE HYDROCHLORIDE [Concomitant]
     Route: 065
  11. CANCIDAS [Suspect]
     Route: 041
     Dates: start: 20101226, end: 20110112
  12. ETHACRYNIC ACID [Concomitant]
     Route: 065
  13. ALBUMIN HUMAN [Concomitant]
     Route: 065
  14. DIATRIZOATE MEGLUMINE AND DIATRIZOATE SODIUM [Concomitant]
     Route: 065
  15. CANRENOATE POTASSIUM [Concomitant]
     Route: 065
  16. OCTREOTIDE [Concomitant]
     Route: 065
  17. PHYTONADIONE [Concomitant]
     Route: 065
  18. CANCIDAS [Suspect]
     Route: 041
     Dates: start: 20101225, end: 20101225
  19. PIPERACILLIN SODIUM AND TAZOBACTAM SODIUM [Suspect]
     Route: 041
     Dates: start: 20101222, end: 20101225
  20. ENOXAPARIN SODIUM [Concomitant]
     Route: 065
  21. FLUCONAZOLE [Concomitant]
     Route: 065
  22. PROPACETAMOL HYDROCHLORIDE [Concomitant]
     Route: 065
  23. CIPROFLOXACIN [Suspect]
     Route: 041
     Dates: start: 20101227, end: 20110103
  24. LINEZOLID [Suspect]
     Route: 041
     Dates: start: 20110104, end: 20110113
  25. CISATRACURIUM BESYLATE [Concomitant]
     Route: 065
  26. AMIODARONE HYDROCHLORIDE [Concomitant]
     Route: 065

REACTIONS (1)
  - STEVENS-JOHNSON SYNDROME [None]
